FAERS Safety Report 21106207 (Version 1)
Quarter: 2022Q3

REPORT INFORMATION
  Report Type: Spontaneous
  Country: US (occurrence: US)
  Receive Date: 20220720
  Receipt Date: 20220720
  Transmission Date: 20221026
  Serious: No
  Sender: FDA-Public Use
  Company Number: US-PFIZER INC-202200967878

PATIENT
  Age: 74 Year
  Sex: Female
  Weight: 70.3 kg

DRUGS (9)
  1. PAXLOVID [Interacting]
     Active Substance: NIRMATRELVIR\RITONAVIR
     Indication: COVID-19 treatment
     Dosage: UNK
     Dates: start: 20220624
  2. DEXILANT [Interacting]
     Active Substance: DEXLANSOPRAZOLE
     Indication: Dyspepsia
     Dosage: 60 MG, DAILY
     Dates: end: 20220629
  3. DEXILANT [Interacting]
     Active Substance: DEXLANSOPRAZOLE
     Indication: Hyperchlorhydria
  4. HYDROCHLOROTHIAZIDE\LOSARTAN [Concomitant]
     Active Substance: HYDROCHLOROTHIAZIDE\LOSARTAN
     Dosage: DAILY
  5. CELEBREX [Concomitant]
     Active Substance: CELECOXIB
     Indication: Arthritis
     Dosage: NOT TAKING IT DAILY BECAUSE PATIENT WAS DOING FINE
  6. MINERALS\VITAMINS [Concomitant]
     Active Substance: MINERALS\VITAMINS
     Dosage: 2X/DAY
  7. PROTEXIN BALANCE [Concomitant]
     Indication: Probiotic therapy
     Dosage: PREBIOTIC AND PROBIOTIC
  8. SIMETHICONE (DIMETHICONE) [Concomitant]
     Active Substance: DIMETHICONE
     Indication: Flatulence
     Dosage: 75
  9. ALLEGRA [Concomitant]
     Active Substance: FEXOFENADINE HYDROCHLORIDE
     Indication: Eczema
     Dosage: UNK

REACTIONS (15)
  - Feeling abnormal [Unknown]
  - Decreased appetite [Unknown]
  - Dysgeusia [Unknown]
  - Nausea [Unknown]
  - Diarrhoea [Unknown]
  - Constipation [Unknown]
  - Drug interaction [Unknown]
  - Drug level increased [Unknown]
  - Gastrooesophageal reflux disease [Unknown]
  - Headache [Unknown]
  - Balance disorder [Unknown]
  - Dizziness [Unknown]
  - Vertigo [Unknown]
  - Ear disorder [Unknown]
  - Ageusia [Unknown]

NARRATIVE: CASE EVENT DATE: 20220601
